FAERS Safety Report 12610595 (Version 1)
Quarter: 2016Q3

REPORT INFORMATION
  Report Type: Spontaneous
  Country: JP (occurrence: JP)
  Receive Date: 20160801
  Receipt Date: 20160801
  Transmission Date: 20161109
  Serious: Yes (Other)
  Sender: FDA-Public Use
  Company Number: JP-MYLANLABS-2016M1031117

PATIENT

DRUGS (1)
  1. PACLITAXEL. [Suspect]
     Active Substance: PACLITAXEL
     Indication: BREAST CANCER METASTATIC
     Dosage: 80 MG/MM, 2-3 WEEKS ADMINISTRATION AND 1 WEEK REST
     Route: 065

REACTIONS (3)
  - Alopecia [Unknown]
  - Nail avulsion [Unknown]
  - Neuropathy peripheral [Unknown]
